FAERS Safety Report 8845644 (Version 2)
Quarter: 2012Q4

REPORT INFORMATION
  Report Type: 
  Country: FR (occurrence: FR)
  Receive Date: 20121017
  Receipt Date: 20121109
  Transmission Date: 20130627
  Serious: Yes (Hospitalization, Other)
  Sender: FDA-Public Use
  Company Number: FR-ABBOTT-12P-056-0994319-00

PATIENT
  Sex: Male

DRUGS (7)
  1. NORVIR [Suspect]
     Indication: HIV INFECTION
     Dosage: as a booster
     Route: 048
     Dates: start: 2009
  2. NORVIR [Suspect]
     Indication: LUNG NEOPLASM MALIGNANT
  3. REYATAZ [Suspect]
     Indication: HIV INFECTION
     Dosage: as a booster
     Route: 048
     Dates: start: 2009
  4. KIVEXA [Suspect]
     Indication: HIV INFECTION
     Dosage: 600mg/300mg
     Route: 048
     Dates: start: 2009
  5. VORICONAZOLE [Suspect]
     Indication: BRONCHOPULMONARY ASPERGILLOSIS
     Route: 048
     Dates: start: 201010
  6. VORICONAZOLE [Suspect]
     Indication: PROPHYLAXIS
     Dosage: Increased (see narrative)
  7. VORICONAZOLE [Suspect]

REACTIONS (19)
  - Squamous cell carcinoma of lung [Not Recovered/Not Resolved]
  - Squamous cell carcinoma [Recovering/Resolving]
  - Staphylococcal sepsis [Unknown]
  - Hypoxia [Unknown]
  - Coma [Unknown]
  - Lung disorder [Recovered/Resolved]
  - Escherichia bacteraemia [Recovered/Resolved]
  - Anaemia [Unknown]
  - Pneumonia necrotising [Recovering/Resolving]
  - Haemoptysis [Recovered/Resolved]
  - Bronchial disorder [Unknown]
  - Dermatitis exfoliative [Unknown]
  - Lymphadenopathy [Unknown]
  - Pulmonary mass [Unknown]
  - Pneumonia [Unknown]
  - Bronchopulmonary aspergillosis [Recovering/Resolving]
  - Lymphadenopathy [Unknown]
  - Lung infection [Recovered/Resolved]
  - Productive cough [Recovered/Resolved]
